FAERS Safety Report 25057159 (Version 2)
Quarter: 2025Q4

REPORT INFORMATION
  Report Type: Spontaneous
  Country: EU (occurrence: EU)
  Receive Date: 20250310
  Receipt Date: 20251106
  Transmission Date: 20260118
  Serious: No
  Sender: SANDOZ
  Company Number: EU-SANDOZ-SDZ2025NL014479

PATIENT

DRUGS (1)
  1. OMNITROPE [Suspect]
     Active Substance: SOMATROPIN
     Indication: Product used for unknown indication
     Dosage: UNK,
     Route: 065

REACTIONS (1)
  - Incorrect dose administered [Unknown]
